FAERS Safety Report 16540689 (Version 1)
Quarter: 2019Q3

REPORT INFORMATION
  Report Type: Spontaneous
  Country: US (occurrence: US)
  Receive Date: 20190707
  Receipt Date: 20190707
  Transmission Date: 20191004
  Serious: No
  Sender: FDA-Public Use
  Company Number: None

PATIENT
  Age: 32 Year
  Sex: Female
  Weight: 67.5 kg

DRUGS (6)
  1. GARLIC. [Concomitant]
     Active Substance: GARLIC
  2. CRANBERRY SUPPLEMENT [Concomitant]
  3. ECHINACEA [Concomitant]
     Active Substance: ECHINACEA, UNSPECIFIED
  4. AZO [Concomitant]
     Active Substance: PHENAZOPYRIDINE HYDROCHLORIDE
  5. BACTRIM [Suspect]
     Active Substance: SULFAMETHOXAZOLE\TRIMETHOPRIM
     Indication: STAPHYLOCOCCAL INFECTION
     Dosage: ?          QUANTITY:1 TABLET(S);?
     Route: 048
  6. IBUPROFEN. [Concomitant]
     Active Substance: IBUPROFEN

REACTIONS (8)
  - Mouth ulceration [None]
  - Eye irritation [None]
  - Lip exfoliation [None]
  - Vulvovaginal swelling [None]
  - Dysuria [None]
  - Fatigue [None]
  - Lip swelling [None]
  - Vaginal discharge [None]

NARRATIVE: CASE EVENT DATE: 20190701
